FAERS Safety Report 5933700-2 (Version None)
Quarter: 2008Q4

REPORT INFORMATION
  Report Type: 
  Country: None (occurrence: None)
  Receive Date: 20081029
  Receipt Date: 20081024
  Transmission Date: 20090506
  Serious: Yes (Other)
  Sender: FDA-Public Use
  Company Number: BR-BRISTOL-MYERS SQUIBB COMPANY-14383541

PATIENT
  Age: 18 Year
  Sex: Male

DRUGS (1)
  1. ABILIFY [Suspect]
     Indication: DELIRIUM
     Dosage: 1/4 OF 10MG TAB. INTERRUPTED ON 24OCT08
     Route: 048
     Dates: start: 20081018

REACTIONS (1)
  - HAEMORRHAGE [None]
